FAERS Safety Report 23799263 (Version 1)
Quarter: 2024Q2

REPORT INFORMATION
  Report Type: Spontaneous
  Country: US (occurrence: None)
  Receive Date: 20240428
  Receipt Date: 20240428
  Transmission Date: 20240715
  Serious: No
  Sender: FDA-Public Use
  Company Number: None

PATIENT
  Age: 59 Year
  Sex: Male
  Weight: 117 kg

DRUGS (1)
  1. IOHEXOL [Suspect]
     Active Substance: IOHEXOL
     Indication: Cardiac operation
     Dosage: MG ONCE IV
     Route: 042
     Dates: start: 20230301, end: 20230301

REACTIONS (1)
  - Hypotension [None]

NARRATIVE: CASE EVENT DATE: 20230301
